FAERS Safety Report 10572675 (Version 1)
Quarter: 2014Q4

REPORT INFORMATION
  Report Type: Spontaneous
  Country: IT (occurrence: None)
  Receive Date: 20141106
  Receipt Date: 20141106
  Transmission Date: 20150529
  Serious: Yes (Hospitalization)
  Sender: FDA-Public Use
  Company Number: IT2014GSK010589

PATIENT
  Sex: Female
  Weight: 3 kg

DRUGS (1)
  1. SEREUPIN (PAROXETINE HYDROCHLORIDE) TABLET [Suspect]
     Active Substance: PAROXETINE HYDROCHLORIDE
     Indication: PRODUCT USED FOR UNKNOWN INDICATION
     Route: 064
     Dates: start: 20140102, end: 20141001

REACTIONS (3)
  - Foetal exposure during pregnancy [None]
  - Maternal drugs affecting foetus [None]
  - Hyporesponsive to stimuli [None]

NARRATIVE: CASE EVENT DATE: 20141001
